FAERS Safety Report 8457637 (Version 6)
Quarter: 2012Q4

REPORT INFORMATION
  Report Type: 
  Country: US (occurrence: US)
  Receive Date: 20120314
  Receipt Date: 20120903
  Transmission Date: 20130627
  Serious: No
  Sender: FDA-Public Use
  Company Number: US-PFIZER INC-2012063508

PATIENT
  Age: 64 Year
  Sex: Male
  Weight: 77.1 kg

DRUGS (13)
  1. VORICONAZOLE [Suspect]
     Indication: FUNGAL INFECTION
     Dosage: UNK
     Route: 048
     Dates: end: 201112
  2. VFEND [Suspect]
     Indication: FUNGAL INFECTION
     Dosage: 200 mg, 2x/day
     Route: 048
     Dates: start: 20111226, end: 20120617
  3. VFEND [Suspect]
     Dosage: UNK
     Dates: end: 20120717
  4. NORVASC [Suspect]
     Indication: ARTERIOSPASM CORONARY
     Dosage: 5 mg, 2x/day
     Dates: start: 20060919
  5. NORVASC [Suspect]
     Indication: OESOPHAGEAL SPASM
  6. DOXYCYCLINE [Suspect]
     Dosage: UNK
  7. EFFEXOR [Concomitant]
     Indication: DEPRESSION
     Dosage: 37.5 mg, daily
  8. EFFEXOR [Concomitant]
     Dosage: 37.5 + 75 mg
  9. ALTACE [Concomitant]
     Indication: ECHOGRAPHY ABNORMAL
     Dosage: 2.5 mg, daily
  10. ALTACE [Concomitant]
     Indication: ECHOCARDIOGRAM ABNORMAL
  11. ADDERALL [Concomitant]
     Indication: SLEEP APNOEA SYNDROME
     Dosage: 5 mg, 2x/day
  12. POLYETHYLENE GLYCOL [Concomitant]
     Indication: CONSTIPATION
     Dosage: 17 g, daily
  13. CRESTOR [Concomitant]
     Indication: BLOOD CHOLESTEROL INCREASED
     Dosage: 10 mg, daily

REACTIONS (16)
  - Rash [Not Recovered/Not Resolved]
  - Oedema peripheral [Recovered/Resolved]
  - Pain [Recovered/Resolved]
  - Fatigue [Not Recovered/Not Resolved]
  - Visual impairment [Recovered/Resolved]
  - Photosensitivity reaction [Recovered/Resolved]
  - Headache [Unknown]
  - Nausea [Unknown]
  - Malaise [Not Recovered/Not Resolved]
  - Chills [Unknown]
  - Drug intolerance [Unknown]
  - Skin hyperpigmentation [Not Recovered/Not Resolved]
  - Dizziness [Not Recovered/Not Resolved]
  - Erythema [Unknown]
  - Skin exfoliation [Recovering/Resolving]
  - Alopecia [Recovering/Resolving]
